FAERS Safety Report 23114396 (Version 1)
Quarter: 2023Q4

REPORT INFORMATION
  Report Type: Spontaneous
  Country: RU (occurrence: RU)
  Receive Date: 20231027
  Receipt Date: 20231027
  Transmission Date: 20240110
  Serious: Yes (Other)
  Sender: FDA-Public Use
  Company Number: RU-JNJFOC-20231050989

PATIENT
  Age: 26 Year

DRUGS (3)
  1. STELARA [Suspect]
     Active Substance: USTEKINUMAB
     Indication: Colitis ulcerative
     Dosage: 2 SYRINGES, LAST DOSE ADMINISTERED : 30-JUN-2023.
     Route: 058
     Dates: start: 20220727
  2. STELARA [Suspect]
     Active Substance: USTEKINUMAB
  3. TOFACITINIB [Concomitant]
     Active Substance: TOFACITINIB
     Route: 065
     Dates: start: 20230810

REACTIONS (7)
  - Pancreatitis [Unknown]
  - Osteoarthritis [Unknown]
  - Arthropathy [Unknown]
  - Cholelithiasis [Unknown]
  - Duodenogastric reflux [Unknown]
  - Gastrooesophageal reflux disease [Unknown]
  - Gastritis [Unknown]
